FAERS Safety Report 11356456 (Version 1)
Quarter: 2015Q3

REPORT INFORMATION
  Report Type: Spontaneous
  Country: US (occurrence: US)
  Receive Date: 20150807
  Receipt Date: 20150807
  Transmission Date: 20151125
  Serious: Yes (Other)
  Sender: FDA-Public Use
  Company Number: US-JNJFOC-20150804652

PATIENT
  Sex: Male
  Weight: 71.67 kg

DRUGS (2)
  1. T GEL SHAMPOO [Concomitant]
     Route: 061
  2. KETOCONAZOLE. [Suspect]
     Active Substance: KETOCONAZOLE
     Indication: ACTINIC KERATOSIS
     Route: 061
     Dates: start: 2009

REACTIONS (2)
  - Dry skin [Not Recovered/Not Resolved]
  - Atrial fibrillation [Not Recovered/Not Resolved]
